FAERS Safety Report 9109271 (Version 1)
Quarter: 2013Q1

REPORT INFORMATION
  Report Type: Report from Study
  Country: US (occurrence: US)
  Receive Date: 20130222
  Receipt Date: 20130222
  Transmission Date: 20140127
  Serious: Yes (Hospitalization, Other)
  Sender: FDA-Public Use
  Company Number: US-ABBOTT-13P-163-1050126-00

PATIENT
  Age: 67 None
  Sex: Female
  Weight: 79.45 kg

DRUGS (9)
  1. HUMIRA [Suspect]
     Indication: RHEUMATOID ARTHRITIS
     Dates: start: 201104
  2. ASPIRIN [Concomitant]
     Indication: PRODUCT USED FOR UNKNOWN INDICATION
     Dosage: 81MG DAILY
  3. METHOTREXATE [Concomitant]
     Indication: RHEUMATOID ARTHRITIS
  4. TRAMADOL [Concomitant]
     Indication: RHEUMATOID ARTHRITIS
  5. PRILOSEC [Concomitant]
     Indication: GASTRIC DISORDER
  6. FOLIC ACID [Concomitant]
     Indication: VITAMIN SUPPLEMENTATION
  7. CYMBALTA [Concomitant]
     Indication: DEPRESSION
  8. NEUROTIN [Concomitant]
     Indication: BACK PAIN
  9. CELEBREX [Concomitant]
     Indication: PAIN IN EXTREMITY

REACTIONS (10)
  - Atrial fibrillation [Recovered/Resolved]
  - Cardiac disorder [Recovered/Resolved]
  - Cardiac failure [Unknown]
  - Dyspnoea [Recovered/Resolved]
  - Intervertebral disc protrusion [Unknown]
  - Heart rate increased [Recovered/Resolved]
  - Atrial fibrillation [Recovered/Resolved]
  - Atrial fibrillation [Recovered/Resolved]
  - Asthenia [Recovered/Resolved]
  - Atrial fibrillation [Recovered/Resolved]
